FAERS Safety Report 7473856-6 (Version None)
Quarter: 2011Q2

REPORT INFORMATION
  Report Type: 
  Country: None (occurrence: None)
  Receive Date: 20110511
  Receipt Date: 20110506
  Transmission Date: 20111010
  Serious: Yes (Other)
  Sender: FDA-Public Use
  Company Number: US-MEDIMMUNE-MEDI-0011734

PATIENT
  Sex: Female

DRUGS (6)
  1. SYNAGIS [Suspect]
     Dates: start: 20101108, end: 20101108
  2. SYNAGIS [Suspect]
     Dates: start: 20101201, end: 20101201
  3. LASIX [Concomitant]
  4. NALOXONE [Concomitant]
  5. MILK OF MAGNESIA TAB [Concomitant]
  6. ENALAPRIL [Concomitant]

REACTIONS (4)
  - CARDIAC FAILURE CONGESTIVE [None]
  - INCORRECT DOSE ADMINISTERED [None]
  - OXYGEN SATURATION DECREASED [None]
  - IRRITABILITY [None]
